FAERS Safety Report 5653538-3 (Version None)
Quarter: 2008Q1

REPORT INFORMATION
  Report Type: 
  Country: None (occurrence: None)
  Receive Date: 20080131
  Receipt Date: 20071109
  Transmission Date: 20080703
  Serious: No
  Sender: FDA-Public Use
  Company Number: US200711002354

PATIENT
  Age: 52 Year
  Sex: Female

DRUGS (5)
  1. BYETTA [Suspect]
     Dosage: 5 UG, 2/D, SUBCUTANEOUS
     Route: 058
     Dates: start: 20071029
  2. EXENATIDE 5MCG PEN, DISPOSABLE DEVICE [Concomitant]
  3. DIOVAN HCT [Concomitant]
  4. METFORMIN HCL (METFORMIN HYDROCHLORIDE) [Concomitant]
  5. LIPITOR [Concomitant]

REACTIONS (4)
  - ALOPECIA [None]
  - NAUSEA [None]
  - ONYCHOCLASIS [None]
  - TRICHORRHEXIS [None]
